FAERS Safety Report 8832087 (Version 2)
Quarter: 2014Q2

REPORT INFORMATION
  Report Type: Spontaneous
  Country: US (occurrence: US)
  Receive Date: 20121009
  Receipt Date: 20131024
  Transmission Date: 20141212
  Serious: Yes (Other)
  Sender: FDA-Public Use
  Company Number: US-PFIZER INC-2012245119

PATIENT
  Sex: 0

DRUGS (1)
  1. PREMPRO [Suspect]
     Dosage: UNK, 0.625 MG/2.5 MG, 1X28

REACTIONS (1)
  - Deep vein thrombosis [Unknown]
